FAERS Safety Report 24530323 (Version 2)
Quarter: 2024Q4

REPORT INFORMATION
  Report Type: Spontaneous
  Country: CN (occurrence: CN)
  Receive Date: 20241021
  Receipt Date: 20241112
  Transmission Date: 20250115
  Serious: Yes (Other)
  Sender: GE HEALTHCARE
  Company Number: CN-GE HEALTHCARE-2024CSU011484

PATIENT
  Age: 34 Year
  Sex: Female

DRUGS (1)
  1. OMNISCAN [Suspect]
     Active Substance: GADODIAMIDE
     Indication: Magnetic resonance imaging pelvic
     Dosage: UNK UNK, TOTAL
     Route: 065
     Dates: start: 20240824, end: 20240824

REACTIONS (22)
  - Muscle twitching [Recovering/Resolving]
  - Abnormal menstrual clots [Not Recovered/Not Resolved]
  - Weight decreased [Unknown]
  - Decreased appetite [Recovering/Resolving]
  - Faeces discoloured [Recovering/Resolving]
  - Dysuria [Recovering/Resolving]
  - Faeces soft [Recovering/Resolving]
  - Muscle atrophy [Recovering/Resolving]
  - Flatulence [Recovering/Resolving]
  - Discomfort [Recovering/Resolving]
  - Abdominal pain upper [Recovering/Resolving]
  - Tinnitus [Recovering/Resolving]
  - Myalgia [Recovering/Resolving]
  - Heart rate increased [Recovering/Resolving]
  - Contrast media deposition [Recovering/Resolving]
  - Paraesthesia [Recovering/Resolving]
  - Pain in extremity [Recovering/Resolving]
  - Pain [Recovering/Resolving]
  - Arthralgia [Recovering/Resolving]
  - Diarrhoea [Recovering/Resolving]
  - Headache [Recovering/Resolving]
  - Chills [Recovering/Resolving]

NARRATIVE: CASE EVENT DATE: 20240824
